FAERS Safety Report 4822122-3 (Version None)
Quarter: 2005Q4

REPORT INFORMATION
  Report Type: 
  Country: None (occurrence: None)
  Receive Date: 20051103
  Receipt Date: 20051018
  Transmission Date: 20060501
  Serious: Yes (Death, Hospitalization, Other)
  Sender: FDA-Public Use
  Company Number: DE_050816655

PATIENT
  Sex: Female
  Weight: 78 kg

DRUGS (3)
  1. GEMZAR [Suspect]
     Indication: PANCREATIC CARCINOMA
     Dosage: 1000 MG/M2
     Dates: start: 20050101, end: 20050718
  2. FLUOROURACIL [Concomitant]
  3. LEUCOVORIN [Concomitant]

REACTIONS (25)
  - ACUTE RESPIRATORY DISTRESS SYNDROME [None]
  - ALVEOLITIS [None]
  - ARTERIOSCLEROSIS [None]
  - CARDIOMEGALY [None]
  - CARDIOMYOPATHY [None]
  - DIALYSIS [None]
  - DIFFUSE ALVEOLAR DAMAGE [None]
  - DRUG TOXICITY [None]
  - HAEMOLYTIC URAEMIC SYNDROME [None]
  - HAEMORRHAGIC INFARCTION [None]
  - HYPERTENSION [None]
  - METASTASES TO LIVER [None]
  - METASTASES TO LYMPH NODES [None]
  - NEPHRITIS [None]
  - OEDEMA [None]
  - PNEUMONIA [None]
  - PNEUMONITIS [None]
  - PULMONARY INFARCTION [None]
  - RENAL DISORDER [None]
  - RENAL FAILURE ACUTE [None]
  - RENAL INFARCT [None]
  - RENAL NECROSIS [None]
  - RENAL TUBULAR NECROSIS [None]
  - RESPIRATORY FAILURE [None]
  - VIRAL INFECTION [None]
